FAERS Safety Report 21682663 (Version 2)
Quarter: 2023Q1

REPORT INFORMATION
  Report Type: Spontaneous
  Country: US (occurrence: US)
  Receive Date: 20221205
  Receipt Date: 20230104
  Transmission Date: 20230417
  Serious: No
  Sender: FDA-Public Use
  Company Number: US-BEH-2022152616

PATIENT
  Age: 37 Year
  Sex: Female
  Weight: 81.633 kg

DRUGS (6)
  1. PRIVIGEN [Suspect]
     Active Substance: HUMAN IMMUNOGLOBULIN G
     Indication: Pemphigus
     Dosage: 65 GRAM, 2 DAYS EVERY 4 WEEKS
     Route: 042
     Dates: start: 20220404
  2. PRIVIGEN [Suspect]
     Active Substance: HUMAN IMMUNOGLOBULIN G
     Dosage: UNK
     Route: 042
  3. PRIVIGEN [Suspect]
     Active Substance: HUMAN IMMUNOGLOBULIN G
     Dosage: UNK
     Route: 042
  4. METHYLPREDNISOLONE [Concomitant]
     Active Substance: METHYLPREDNISOLONE
     Indication: Premedication
     Dosage: 100 MILLIGRAM
     Route: 042
  5. DIPHENHYDRAMINE [Concomitant]
     Active Substance: DIPHENHYDRAMINE
     Indication: Premedication
     Dosage: 25 MILLIGRAM
     Route: 048
  6. ACETAMINOPHEN [Concomitant]
     Active Substance: ACETAMINOPHEN
     Indication: Premedication
     Dosage: 650 MILLIGRAM
     Route: 048

REACTIONS (6)
  - Lip exfoliation [Unknown]
  - Oral mucosal exfoliation [Unknown]
  - Oral mucosal blistering [Unknown]
  - Lip blister [Unknown]
  - No adverse event [Unknown]
  - Off label use [Unknown]

NARRATIVE: CASE EVENT DATE: 20221116
